FAERS Safety Report 18871611 (Version 1)
Quarter: 2021Q1

REPORT INFORMATION
  Report Type: Spontaneous
  Country: US (occurrence: US)
  Receive Date: 20210210
  Receipt Date: 20210210
  Transmission Date: 20210420
  Serious: No
  Sender: FDA-Public Use
  Company Number: US-ALLERGAN-2038513US

PATIENT
  Sex: Female

DRUGS (2)
  1. PLEXION [Concomitant]
     Active Substance: SULFACETAMIDE SODIUM\SULFUR
     Dosage: UNK
     Dates: start: 20200908, end: 20200914
  2. FABIOR [Suspect]
     Active Substance: TAZAROTENE
     Indication: ACNE
     Dosage: UNK UNK, QPM
     Route: 061
     Dates: start: 20200908, end: 20200913

REACTIONS (3)
  - Skin exfoliation [Unknown]
  - Eyelid irritation [Unknown]
  - Application site pain [Unknown]

NARRATIVE: CASE EVENT DATE: 202009
